FAERS Safety Report 12892131 (Version 1)
Quarter: 2016Q4

REPORT INFORMATION
  Report Type: Spontaneous
  Country: US (occurrence: US)
  Receive Date: 20161028
  Receipt Date: 20161028
  Transmission Date: 20170207
  Serious: No
  Sender: FDA-Public Use
  Company Number: US-TAKEDA-2016TUS019419

PATIENT
  Sex: Male
  Weight: 72.56 kg

DRUGS (6)
  1. AMLODIPINE [Concomitant]
     Active Substance: AMLODIPINE BESYLATE
     Indication: HYPERTENSION
     Dosage: 5 MG, QD
     Route: 048
  2. KAZANO [Suspect]
     Active Substance: ALOGLIPTIN BENZOATE\METFORMIN HYDROCHLORIDE
     Indication: DIABETES MELLITUS
     Dosage: 12.5/500MG, BID
     Route: 048
     Dates: start: 201604, end: 201605
  3. BISOPROLOL [Concomitant]
     Active Substance: BISOPROLOL
     Indication: HYPERTENSION
     Dosage: 2.5 MG, QD
     Route: 048
  4. OSTEO BI-FLEX                      /01431201/ [Concomitant]
     Indication: LIMB DISCOMFORT
     Dosage: UNK
     Route: 048
  5. KAZANO [Suspect]
     Active Substance: ALOGLIPTIN BENZOATE\METFORMIN HYDROCHLORIDE
     Dosage: 12.5/500MG, QD
     Route: 048
     Dates: start: 201605
  6. MINOXIDIL. [Concomitant]
     Active Substance: MINOXIDIL
     Indication: HYPERTENSION
     Dosage: 2.5 MG, QD
     Route: 048

REACTIONS (1)
  - Diarrhoea [Recovering/Resolving]
